FAERS Safety Report 21879001 (Version 3)
Quarter: 2023Q2

REPORT INFORMATION
  Report Type: Spontaneous
  Country: US (occurrence: US)
  Receive Date: 20230118
  Receipt Date: 20230613
  Transmission Date: 20230722
  Serious: Yes (Other)
  Sender: FDA-Public Use
  Company Number: US-PFIZER INC-PV202300008530

PATIENT
  Age: 56 Year
  Sex: Female

DRUGS (1)
  1. XELJANZ XR [Suspect]
     Active Substance: TOFACITINIB CITRATE
     Dosage: UNK
     Dates: end: 20230430

REACTIONS (9)
  - Choking [Unknown]
  - Productive cough [Unknown]
  - Acne [Unknown]
  - Paranasal sinus discomfort [Unknown]
  - Sinus congestion [Unknown]
  - Quality of life decreased [Unknown]
  - Insomnia [Unknown]
  - Epistaxis [Unknown]
  - Illness [Unknown]

NARRATIVE: CASE EVENT DATE: 20230101
